FAERS Safety Report 6892472-8 (Version None)
Quarter: 2010Q3

REPORT INFORMATION
  Report Type: 
  Country: None (occurrence: None)
  Receive Date: 20100731
  Receipt Date: 20080522
  Transmission Date: 20110219
  Serious: No
  Sender: FDA-Public Use
  Company Number: US-PFIZER INC-2008044855

PATIENT
  Sex: Female
  Weight: 67.13 kg

DRUGS (2)
  1. NEURONTIN [Suspect]
     Indication: ANXIETY
     Dates: start: 20080401
  2. ALL OTHER THERAPEUTIC PRODUCTS [Concomitant]
     Dates: start: 20080405

REACTIONS (1)
  - DRUG SCREEN FALSE POSITIVE [None]
